FAERS Safety Report 15322426 (Version 1)
Quarter: 2018Q3

REPORT INFORMATION
  Report Type: Spontaneous
  Country: GB (occurrence: GB)
  Receive Date: 20180827
  Receipt Date: 20180827
  Transmission Date: 20181010
  Serious: Yes (Other)
  Sender: FDA-Public Use
  Company Number: PHHY2018GB076576

PATIENT
  Age: 81 Year
  Sex: Female

DRUGS (2)
  1. TRAMETINIB [Suspect]
     Active Substance: TRAMETINIB
     Indication: METASTATIC MALIGNANT MELANOMA
     Dosage: 2 MG, QD
     Route: 065
  2. DABRAFENIB [Suspect]
     Active Substance: DABRAFENIB
     Indication: METASTATIC MALIGNANT MELANOMA
     Dosage: 100 MG, BID
     Route: 065

REACTIONS (8)
  - Swelling face [Unknown]
  - Decreased appetite [Unknown]
  - Muscular weakness [Unknown]
  - Myalgia [Unknown]
  - Dermatomyositis [Recovering/Resolving]
  - Rash macular [Unknown]
  - Fatigue [Unknown]
  - Dysphagia [Recovered/Resolved]
